FAERS Safety Report 4713448-2 (Version None)
Quarter: 2005Q3

REPORT INFORMATION
  Report Type: 
  Country: None (occurrence: None)
  Receive Date: 20050712
  Receipt Date: 20050624
  Transmission Date: 20060218
  Serious: Yes (Death)
  Sender: FDA-Public Use
  Company Number: 23100226

PATIENT
  Age: 73 Year
  Sex: Male

DRUGS (3)
  1. NOVASTAN [Suspect]
     Indication: CEREBRAL INFARCTION
     Dosage: 60 MG QD; IV
     Route: 042
     Dates: start: 20050608, end: 20050609
  2. PADICUT (EDARAVONE) [Suspect]
     Indication: CEREBRAL INFARCTION
     Dosage: 30 MG BID; IV
     Route: 042
     Dates: start: 20050608, end: 20050609
  3. TRIFLUID [Concomitant]

REACTIONS (6)
  - AORTIC VALVE INCOMPETENCE [None]
  - CARDIAC ARREST [None]
  - CARDIAC FAILURE ACUTE [None]
  - CARDIO-RESPIRATORY ARREST [None]
  - DIALYSIS [None]
  - PULMONARY OEDEMA [None]
